FAERS Safety Report 6487687-7 (Version None)
Quarter: 2009Q4

REPORT INFORMATION
  Report Type: 
  Country: None (occurrence: None)
  Receive Date: 20091209
  Receipt Date: 20091209
  Transmission Date: 20100525
  Serious: Yes (Hospitalization)
  Sender: FDA-Public Use
  Company Number: None

PATIENT
  Age: 62 Year
  Sex: Female
  Weight: 171 kg

DRUGS (7)
  1. NEXAVAR [Suspect]
     Dosage: 3-4 WKS CHEMO
  2. M.V.I. [Concomitant]
  3. COLACE [Concomitant]
  4. LORAZEPAM [Concomitant]
  5. METOCLOPROMIDE [Concomitant]
  6. TYLENOL (CAPLET) [Concomitant]
  7. COZAAR [Concomitant]

REACTIONS (5)
  - AGITATION [None]
  - ANAEMIA [None]
  - CEREBRAL ISCHAEMIA [None]
  - HAEMORRHAGE [None]
  - HYPERTENSIVE ENCEPHALOPATHY [None]
